FAERS Safety Report 12853810 (Version 3)
Quarter: 2018Q1

REPORT INFORMATION
  Report Type: Report from Study
  Country: AR (occurrence: AR)
  Receive Date: 20161017
  Receipt Date: 20180112
  Transmission Date: 20180508
  Serious: Yes (Other)
  Sender: FDA-Public Use
  Company Number: PHHY2016AR141716

PATIENT
  Sex: Female

DRUGS (3)
  1. DIOVAN [Suspect]
     Active Substance: VALSARTAN
     Indication: HYPERTENSION
     Dosage: 80 OT (UNIT WAS NOT REPORTED), QD
     Route: 065
  2. DIOVAN [Suspect]
     Active Substance: VALSARTAN
     Dosage: 0.5 DF (80, UNITS NOT REPORTED), QD (9 YEARS AGO APPROXIMATELY)
     Route: 065
  3. PANTOPRAZOLE [Concomitant]
     Active Substance: PANTOPRAZOLE
     Indication: PRODUCT USED FOR UNKNOWN INDICATION
     Route: 065

REACTIONS (9)
  - Wrong technique in product usage process [Unknown]
  - Concomitant disease aggravated [Recovering/Resolving]
  - Cough [Unknown]
  - Respiratory failure [Unknown]
  - Bronchiectasis [Recovering/Resolving]
  - Rhinitis [Unknown]
  - Mouth haemorrhage [Unknown]
  - Inflammation [Unknown]
  - Drug prescribing error [Unknown]

NARRATIVE: CASE EVENT DATE: 2016
